FAERS Safety Report 4377096-9 (Version None)
Quarter: 2004Q2

REPORT INFORMATION
  Report Type: 
  Country: None (occurrence: None)
  Receive Date: 20040615
  Receipt Date: 20040506
  Transmission Date: 20050107
  Serious: Yes (Other)
  Sender: FDA-Public Use
  Company Number: 200413516US

PATIENT
  Sex: Female
  Weight: 58.2 kg

DRUGS (1)
  1. ALLEGRA-D [Suspect]
     Indication: MULTIPLE ALLERGIES
     Dosage: DOSE: 60/120
     Dates: start: 20021001

REACTIONS (2)
  - ABORTION SPONTANEOUS [None]
  - DRUG EXPOSURE DURING PREGNANCY [None]
